FAERS Safety Report 6572764-2 (Version None)
Quarter: 2010Q1

REPORT INFORMATION
  Report Type: 
  Country: None (occurrence: None)
  Receive Date: 20100205
  Receipt Date: 20100128
  Transmission Date: 20100710
  Serious: Yes (Other)
  Sender: FDA-Public Use
  Company Number: US-ABBOTT-10P-163-0617694-00

PATIENT
  Sex: Male
  Weight: 124.4 kg

DRUGS (4)
  1. HUMIRA [Suspect]
     Indication: RHEUMATOID ARTHRITIS
     Dosage: AFTER 4 DOSES THE PATIENT STOPPED THERAPY
     Route: 058
     Dates: end: 20091229
  2. UNKNOWN MEDICATION [Suspect]
     Indication: DRUG USE FOR UNKNOWN INDICATION
  3. METHOTREXATE [Concomitant]
     Indication: DRUG USE FOR UNKNOWN INDICATION
  4. UNKNOWN THYROID MEDICATION [Concomitant]
     Indication: HYPOTHYROIDISM

REACTIONS (3)
  - DIASTOLIC DYSFUNCTION [None]
  - OEDEMA PERIPHERAL [None]
  - WEIGHT INCREASED [None]
